FAERS Safety Report 8540041 (Version 4)
Quarter: 2014Q1

REPORT INFORMATION
  Report Type: Spontaneous
  Country: US (occurrence: US)
  Receive Date: 20120502
  Receipt Date: 20140225
  Transmission Date: 20141002
  Serious: Yes (Other)
  Sender: FDA-Public Use
  Company Number: US-BRISTOL-MYERS SQUIBB COMPANY-16542375

PATIENT
  Age: 62 Year
  Sex: Female
  Weight: 52.61 kg

DRUGS (9)
  1. SPRYCEL [Suspect]
     Indication: CHRONIC MYELOID LEUKAEMIA
     Dosage: 5 PILLS?REDUCED TO 70MG?TABS
     Route: 048
     Dates: start: 20120326
  2. SYNTHROID [Concomitant]
  3. JANUVIA [Concomitant]
  4. INDERAL [Concomitant]
  5. TOPROL [Concomitant]
  6. PRILOSEC [Concomitant]
  7. ZOFRAN [Concomitant]
  8. IMITREX [Concomitant]
  9. COMPAZINE [Concomitant]

REACTIONS (12)
  - Dehydration [Recovering/Resolving]
  - Hypotension [Unknown]
  - Blood glucose decreased [Unknown]
  - Diabetes mellitus [Unknown]
  - Colitis ulcerative [Unknown]
  - Paraesthesia oral [Unknown]
  - Nausea [Unknown]
  - Headache [Unknown]
  - Arrhythmia [Unknown]
  - Hypertension [Unknown]
  - Blood sodium decreased [Unknown]
  - Blood magnesium decreased [Unknown]
